FAERS Safety Report 10147310 (Version 1)
Quarter: 2014Q2

REPORT INFORMATION
  Report Type: Spontaneous
  Country: US (occurrence: US)
  Receive Date: 20140501
  Receipt Date: 20140501
  Transmission Date: 20141212
  Serious: No
  Sender: FDA-Public Use
  Company Number: US-SA-2014SA011664

PATIENT
  Age: 48 Year
  Sex: 0
  Weight: 90.5 kg

DRUGS (1)
  1. HECTOROL [Suspect]
     Indication: HYPERPARATHYROIDISM
     Route: 042
     Dates: start: 20140103, end: 20140115

REACTIONS (2)
  - Hot flush [Recovered/Resolved]
  - Palpitations [Recovered/Resolved]
